FAERS Safety Report 8799613 (Version 1)
Quarter: 2012Q4

REPORT INFORMATION
  Report Type: Spontaneous
  Country: US (occurrence: None)
  Receive Date: 20120918
  Receipt Date: 20120918
  Transmission Date: 20130627
  Serious: Yes (Hospitalization)
  Sender: FDA-Public Use
  Company Number: None

PATIENT
  Age: 56 Year
  Sex: Female

DRUGS (3)
  1. RIBASPHERE [Suspect]
     Indication: HEPATITIS C
  2. PEGASYS PFS 180 MCG, VICTRELIS 200MG [Concomitant]
  3. VICTRELIS [Concomitant]

REACTIONS (2)
  - Nausea [None]
  - Vomiting [None]
